FAERS Safety Report 14074699 (Version 1)
Quarter: 2017Q4

REPORT INFORMATION
  Report Type: Spontaneous
  Country: AT (occurrence: AT)
  Receive Date: 20171011
  Receipt Date: 20171011
  Transmission Date: 20180321
  Serious: Yes (Other)
  Sender: FDA-Public Use
  Company Number: AT-LPDUSPRD-20171369

PATIENT
  Age: 21 Year
  Sex: Female

DRUGS (1)
  1. FERINJECT [Suspect]
     Active Substance: FERRIC CARBOXYMALTOSE
     Dosage: 1000 MG, 1 IN 1 TOTAL
     Route: 041
     Dates: start: 20170418, end: 2017

REACTIONS (4)
  - Dyspnoea [Unknown]
  - Urticaria [Unknown]
  - Product preparation error [Unknown]
  - Swelling [Unknown]

NARRATIVE: CASE EVENT DATE: 20170418
